FAERS Safety Report 17988183 (Version 1)
Quarter: 2020Q3

REPORT INFORMATION
  Report Type: Spontaneous
  Country: US (occurrence: US)
  Receive Date: 20200706
  Receipt Date: 20200706
  Transmission Date: 20201103
  Serious: Yes (Hospitalization)
  Sender: FDA-Public Use
  Company Number: None

PATIENT
  Sex: Male

DRUGS (3)
  1. CELECOXIB. [Concomitant]
     Active Substance: CELECOXIB
  2. NOVOEIGHT [Suspect]
     Active Substance: ANTIHEMOPHILIC FACTOR, HUMAN RECOMBINANT
     Indication: FACTOR VIII DEFICIENCY
     Dosage: ?          OTHER FREQUENCY:EVERY OTHER DAY;?
     Route: 042
     Dates: start: 20180322
  3. NOVOEIGHT [Suspect]
     Active Substance: ANTIHEMOPHILIC FACTOR, HUMAN RECOMBINANT
     Indication: FACTOR VIII DEFICIENCY
     Dosage: ?          OTHER FREQUENCY:EVERY OTHER DAY;?
     Route: 042
     Dates: start: 20180322

REACTIONS (2)
  - Haematoma [None]
  - Impaired healing [None]
